FAERS Safety Report 9697669 (Version 2)
Quarter: 2013Q4

REPORT INFORMATION
  Report Type: Spontaneous
  Country: US (occurrence: None)
  Receive Date: 20131112
  Receipt Date: 20131129
  Transmission Date: 20140711
  Serious: Yes (Other)
  Sender: FDA-Public Use
  Company Number: GAM-350-13-BR

PATIENT
  Age: 51 Year
  Sex: 0

DRUGS (2)
  1. OCTAGAM 5 (HUMAN NORMAL IMMUNOGLOBULIN FOR INTRAVENOUS ADMINISTRATION) [Suspect]
     Indication: IMMUNODEFICIENCY COMMON VARIABLE
     Route: 042
     Dates: start: 20130326, end: 20130326
  2. SALINE [Concomitant]

REACTIONS (11)
  - Tremor [None]
  - Chills [None]
  - Nausea [None]
  - Headache [None]
  - Dizziness [None]
  - Dyspnoea [None]
  - Dependent rubor [None]
  - Bronchospasm [None]
  - Vomiting [None]
  - Malaise [None]
  - Infusion related reaction [None]
